FAERS Safety Report 6482842-4 (Version None)
Quarter: 2009Q4

REPORT INFORMATION
  Report Type: 
  Country: None (occurrence: None)
  Receive Date: 20091204
  Receipt Date: 20091119
  Transmission Date: 20100525
  Serious: Yes (Hospitalization, Other)
  Sender: FDA-Public Use
  Company Number: AUR-APL-2009-01411

PATIENT
  Age: 52 Year
  Sex: Male

DRUGS (7)
  1. MIRTAZAPINE [Suspect]
  2. SULPIRIDE [Suspect]
  3. VENLAFAXINE [Suspect]
     Indication: NERVOUS SYSTEM DISORDER
     Dates: start: 20030701
  4. ESCITALOPRAM [Suspect]
     Indication: DEPRESSION
     Dates: start: 20041101
  5. DOXAZOSIN MESYLATE [Concomitant]
  6. FINASTERIDE [Concomitant]
  7. PIRACETAM [Concomitant]

REACTIONS (21)
  - AFFECTIVE DISORDER [None]
  - BENIGN PROSTATIC HYPERPLASIA [None]
  - BULBAR PALSY [None]
  - CHEST PAIN [None]
  - DEEP VEIN THROMBOSIS [None]
  - DEMENTIA [None]
  - DEPRESSION [None]
  - DISORIENTATION [None]
  - ECHOLALIA [None]
  - EMBOLISM [None]
  - EXTRAPYRAMIDAL DISORDER [None]
  - FAECAL INCONTINENCE [None]
  - FALL [None]
  - GAIT DISTURBANCE [None]
  - HEAD INJURY [None]
  - HYPOACUSIS [None]
  - MENIERE'S DISEASE [None]
  - POLYNEUROPATHY [None]
  - RHINITIS [None]
  - SYMPATHETIC POSTERIOR CERVICAL SYNDROME [None]
  - VISUAL IMPAIRMENT [None]
